FAERS Safety Report 9441910 (Version 2)
Quarter: 2013Q3

REPORT INFORMATION
  Report Type: Spontaneous
  Country: ES (occurrence: ES)
  Receive Date: 20130806
  Receipt Date: 20130814
  Transmission Date: 20140515
  Serious: Yes (Life-Threatening, Other)
  Sender: FDA-Public Use
  Company Number: ES-JNJFOC-20130801448

PATIENT
  Age: 52 Year
  Sex: Male

DRUGS (1)
  1. REMICADE [Suspect]
     Indication: SPONDYLITIS
     Dosage: 100 MG, THERAPY DURATION WAS 90 DAYS
     Route: 042
     Dates: start: 201302, end: 201305

REACTIONS (1)
  - Glioblastoma multiforme [Unknown]
